FAERS Safety Report 11175974 (Version 2)
Quarter: 2015Q2

REPORT INFORMATION
  Report Type: Spontaneous
  Country: US (occurrence: US)
  Receive Date: 20150609
  Receipt Date: 20150619
  Transmission Date: 20150821
  Serious: Yes (Hospitalization)
  Sender: FDA-Public Use
  Company Number: US-ACTELION-A-NJ2015-118544

PATIENT
  Age: 74 Year
  Sex: Female

DRUGS (2)
  1. OPSUMIT [Suspect]
     Active Substance: MACITENTAN
     Indication: PULMONARY HYPERTENSION
     Dosage: 10 MG, QD
     Route: 048
     Dates: start: 20140221
  2. REMODULIN [Concomitant]
     Active Substance: TREPROSTINIL
     Dosage: UNK
     Route: 058

REACTIONS (8)
  - Condition aggravated [Unknown]
  - Right ventricular failure [Unknown]
  - Pleural effusion [Unknown]
  - Fluid retention [Unknown]
  - Dyspnoea [Unknown]
  - Mitral valve disease [Unknown]
  - Left ventricular failure [Unknown]
  - General physical health deterioration [Unknown]
